FAERS Safety Report 12577510 (Version 2)
Quarter: 2016Q3

REPORT INFORMATION
  Report Type: Spontaneous
  Country: US (occurrence: US)
  Receive Date: 20160720
  Receipt Date: 20160801
  Transmission Date: 20161109
  Serious: Yes (Hospitalization, Other)
  Sender: FDA-Public Use
  Company Number: US-BIOGEN-2016BI00268058

PATIENT
  Sex: Male

DRUGS (1)
  1. TYSABRI [Suspect]
     Active Substance: NATALIZUMAB
     Indication: MULTIPLE SCLEROSIS
     Route: 065
     Dates: start: 20111122

REACTIONS (10)
  - Multiple sclerosis relapse [Unknown]
  - Laziness [Unknown]
  - Mobility decreased [Unknown]
  - Blood urine present [Recovered/Resolved]
  - Fatigue [Unknown]
  - White blood cell count increased [Unknown]
  - Bacteraemia [Unknown]
  - Memory impairment [Not Recovered/Not Resolved]
  - Urinary tract infection [Unknown]
  - Bacterial test positive [Recovered/Resolved]
